FAERS Safety Report 4588650-3 (Version None)
Quarter: 2005Q1

REPORT INFORMATION
  Report Type: 
  Country: None (occurrence: None)
  Receive Date: 20050214
  Receipt Date: 20050214
  Transmission Date: 20050727
  Serious: Yes (Hospitalization)
  Sender: FDA-Public Use
  Company Number: None

PATIENT
  Age: 78 Year
  Sex: Female
  Weight: 83.4619 kg

DRUGS (2)
  1. TAXOTERE [Suspect]
     Indication: LUNG NEOPLASM MALIGNANT
     Dosage: 57MG D 1,8,15 Q28D IV
     Route: 042
     Dates: start: 20050207
  2. IRESSA [Suspect]
     Dosage: 250MG QD PO
     Route: 048
     Dates: start: 20050207

REACTIONS (14)
  - ABDOMINAL TENDERNESS [None]
  - ASTHENIA [None]
  - BLOOD PRESSURE SYSTOLIC INCREASED [None]
  - BODY TEMPERATURE INCREASED [None]
  - BOWEL SOUNDS ABNORMAL [None]
  - COGNITIVE DISORDER [None]
  - DIARRHOEA [None]
  - DIZZINESS [None]
  - DYSARTHRIA [None]
  - MUCOUS MEMBRANE DISORDER [None]
  - NAUSEA [None]
  - PALLOR [None]
  - RESPIRATORY RATE INCREASED [None]
  - VOMITING [None]
